FAERS Safety Report 9231645 (Version 3)
Quarter: 2014Q3

REPORT INFORMATION
  Report Type: Spontaneous
  Country: US (occurrence: US)
  Receive Date: 20130415
  Receipt Date: 20140805
  Transmission Date: 20150326
  Serious: Yes (Hospitalization, Other)
  Sender: FDA-Public Use
  Company Number: US-ROCHE-718682

PATIENT
  Age: 45 Year
  Sex: Male
  Weight: 58.1 kg

DRUGS (2)
  1. ACCUTANE [Suspect]
     Active Substance: ISOTRETINOIN
     Indication: ACNE CYSTIC
     Route: 065
     Dates: start: 1997, end: 1998
  2. ACCUTANE [Suspect]
     Active Substance: ISOTRETINOIN
     Route: 065

REACTIONS (10)
  - Colitis [Unknown]
  - Rash [Unknown]
  - Gastrointestinal injury [Unknown]
  - Arthralgia [Unknown]
  - Arthralgia [Unknown]
  - Intestinal perforation [Unknown]
  - Crohn^s disease [Unknown]
  - Large intestine polyp [Unknown]
  - Xerosis [Unknown]
  - Inflammatory bowel disease [Unknown]

NARRATIVE: CASE EVENT DATE: 1997
